FAERS Safety Report 17165421 (Version 2)
Quarter: 2020Q1

REPORT INFORMATION
  Report Type: Spontaneous
  Country: US (occurrence: US)
  Receive Date: 20191217
  Receipt Date: 20200102
  Transmission Date: 20200409
  Serious: Yes (Death)
  Sender: FDA-Public Use
  Company Number: US-TEVA-2019-US-1153047

PATIENT
  Age: 20 Year
  Sex: Male

DRUGS (5)
  1. TEMAZEPAM. [Interacting]
     Active Substance: TEMAZEPAM
     Route: 065
  2. LOPERAMIDE [Suspect]
     Active Substance: LOPERAMIDE
     Route: 065
  3. DIAZEPAM. [Interacting]
     Active Substance: DIAZEPAM
     Route: 065
  4. OXAZEPAM. [Interacting]
     Active Substance: OXAZEPAM
     Route: 065
  5. NORDIAZEPAM [Concomitant]
     Active Substance: NORDAZEPAM
     Route: 065

REACTIONS (4)
  - Toxicity to various agents [Fatal]
  - Drug interaction [Fatal]
  - Accident [Fatal]
  - Overdose [Fatal]
